FAERS Safety Report 24444002 (Version 2)
Quarter: 2024Q4

REPORT INFORMATION
  Report Type: Report from Study
  Country: CA (occurrence: CA)
  Receive Date: 20241016
  Receipt Date: 20241017
  Transmission Date: 20250114
  Serious: No
  Sender: ROCHE
  Company Number: CA-ROCHE-2654440

PATIENT
  Age: 41 Year
  Sex: Female

DRUGS (17)
  1. RITUXAN [Suspect]
     Active Substance: RITUXIMAB
     Indication: Granulomatosis with polyangiitis
     Route: 042
     Dates: start: 20200721, end: 20200811
  2. RITUXAN [Suspect]
     Active Substance: RITUXIMAB
     Dosage: SINGLE INFUSIONS, ONGOING
     Route: 042
     Dates: start: 20210212, end: 20221220
  3. RITUXAN [Suspect]
     Active Substance: RITUXIMAB
     Route: 042
     Dates: start: 20230619
  4. RITUXAN [Suspect]
     Active Substance: RITUXIMAB
     Route: 042
  5. RITUXAN [Suspect]
     Active Substance: RITUXIMAB
     Route: 042
  6. RITUXAN [Suspect]
     Active Substance: RITUXIMAB
     Route: 042
  7. CALCIUM [Concomitant]
     Active Substance: CALCIUM
  8. FOLIC ACID [Concomitant]
     Active Substance: FOLIC ACID
  9. OMEGA 3 [Concomitant]
     Active Substance: CAPSAICIN
  10. ADVIL [Concomitant]
     Active Substance: IBUPROFEN
  11. ACTONEL [Concomitant]
     Active Substance: RISEDRONATE SODIUM
  12. BENADRYL [Concomitant]
     Active Substance: DIPHENHYDRAMINE HYDROCHLORIDE
     Indication: Premedication
     Dosage: ONGOING
     Dates: start: 20200804
  13. IMURAN [Concomitant]
     Active Substance: AZATHIOPRINE
  14. PREDNISONE [Concomitant]
     Active Substance: PREDNISONE
  15. SEPTRA [Concomitant]
     Active Substance: SULFAMETHOXAZOLE\TRIMETHOPRIM
     Dosage: ONGOING
  16. SOLU-MEDROL [Concomitant]
     Active Substance: METHYLPREDNISOLONE SODIUM SUCCINATE
     Indication: Premedication
     Dosage: ONGOING
     Route: 042
     Dates: start: 20200804
  17. TYLENOL [Concomitant]
     Active Substance: ACETAMINOPHEN
     Indication: Premedication
     Dosage: ONGOING
     Route: 048
     Dates: start: 20200804

REACTIONS (4)
  - Blood pressure fluctuation [Unknown]
  - Blood pressure diastolic abnormal [Unknown]
  - Infusion related reaction [Recovered/Resolved]
  - Heart rate decreased [Unknown]

NARRATIVE: CASE EVENT DATE: 20200804
